FAERS Safety Report 7024766-X (Version None)
Quarter: 2010Q3

REPORT INFORMATION
  Report Type: 
  Country: None (occurrence: None)
  Receive Date: 20100920
  Receipt Date: 20100709
  Transmission Date: 20110219
  Serious: Yes (Other)
  Sender: FDA-Public Use
  Company Number: 2009157088

PATIENT
  Age: 15 Year
  Sex: Male

DRUGS (2)
  1. DILANTIN-125 [Suspect]
     Indication: CONVULSION
     Dosage: 8 MG, 2X/DAY, ORAL, 125 MG, ORAL, 200 MG, 2X/DAY, ORAL
     Route: 048
     Dates: start: 20051115
  2. DILANTIN-125 [Suspect]
     Indication: CONVULSION
     Dosage: 8 MG, 2X/DAY, ORAL, 125 MG, ORAL, 200 MG, 2X/DAY, ORAL
     Route: 048
     Dates: start: 20051128

REACTIONS (1)
  - STEVENS-JOHNSON SYNDROME [None]
